FAERS Safety Report 6526008-8 (Version None)
Quarter: 2010Q1

REPORT INFORMATION
  Report Type: 
  Country: None (occurrence: None)
  Receive Date: 20100104
  Receipt Date: 20091221
  Transmission Date: 20100710
  Serious: Yes (Other)
  Sender: FDA-Public Use
  Company Number: GB-MYLANLABS-2009S1021646

PATIENT
  Age: 82 Year
  Sex: Male

DRUGS (4)
  1. RISPERIDONE [Suspect]
     Indication: AGITATION
  2. MEMANTINE [Concomitant]
     Indication: DRUG USE FOR UNKNOWN INDICATION
  3. RIVASTIGMINE [Concomitant]
     Indication: DRUG USE FOR UNKNOWN INDICATION
  4. LORAZEPAM [Concomitant]
     Indication: DRUG USE FOR UNKNOWN INDICATION

REACTIONS (3)
  - EATING DISORDER [None]
  - HALLUCINATION [None]
  - MALAISE [None]
